FAERS Safety Report 10697235 (Version 3)
Quarter: 2016Q1

REPORT INFORMATION
  Report Type: Report from Study
  Country: US (occurrence: US)
  Receive Date: 20150108
  Receipt Date: 20160128
  Transmission Date: 20160525
  Serious: Yes (Hospitalization, Disabling, Other)
  Sender: FDA-Public Use
  Company Number: US-UCBSA-2015000363

PATIENT
  Sex: Male

DRUGS (9)
  1. SENNA [Concomitant]
     Active Substance: SENNA LEAF\SENNOSIDES\SENNOSIDES A AND B
     Indication: CONSTIPATION
     Dosage: UNK
  2. PRILOSEC [Concomitant]
     Active Substance: OMEPRAZOLE MAGNESIUM
     Indication: ABDOMINAL PAIN UPPER
     Dosage: 40 MG, ONCE DAILY (QD)
  3. ENSURE [Concomitant]
     Active Substance: AMINO ACIDS\DEXTROSE\ELECTROLYTES NOS\SOYBEAN OIL\VITAMINS
     Indication: PRODUCT USED FOR UNKNOWN INDICATION
     Dosage: UNK
  4. LACOSAMIDE [Suspect]
     Active Substance: LACOSAMIDE
     Indication: SEIZURE
     Dosage: 200 MG, 2X/DAY (BID); EXPIRY DATE: 31-MAR-2019
  5. AMLODIPINE [Concomitant]
     Active Substance: AMLODIPINE BESYLATE
     Indication: HYPERTENSION
     Dosage: 5 MG, ONCE DAILY (QD)
  6. KEPPRA [Suspect]
     Active Substance: LEVETIRACETAM
     Indication: SEIZURE
     Dosage: 3X/DAY (TID), 1000 MG AT 06:00, 2000 MG AT 14:00 AND 1000 MG AT 22:00
     Dates: start: 2009
  7. DILANTIN [Concomitant]
     Active Substance: PHENYTOIN
     Indication: SEIZURE
     Dosage: 1000 MG, 3X/DAY (TID), 1000 MG AT 9AM, 1000 MG AT 5PM ANDD 1000 MG AT 1AM
  8. METOPROLOL. [Concomitant]
     Active Substance: METOPROLOL
     Indication: HYPERTENSION
     Dosage: 25 MG, ONCE DAILY (QD)
  9. MIRALAX [Concomitant]
     Active Substance: POLYETHYLENE GLYCOL 3350
     Indication: CONSTIPATION
     Dosage: UNK

REACTIONS (10)
  - Seizure [Unknown]
  - Constipation [Not Recovered/Not Resolved]
  - Off label use [Unknown]
  - Amnesia [Not Recovered/Not Resolved]
  - Eating disorder [Unknown]
  - Intracranial aneurysm [Recovered/Resolved with Sequelae]
  - Overdose [Unknown]
  - Bedridden [Unknown]
  - Wrong technique in product usage process [Unknown]
  - Paralysis [Unknown]

NARRATIVE: CASE EVENT DATE: 2009
